FAERS Safety Report 5614163-3 (Version None)
Quarter: 2008Q1

REPORT INFORMATION
  Report Type: 
  Country: None (occurrence: None)
  Receive Date: 20080205
  Receipt Date: 20080201
  Transmission Date: 20080703
  Serious: Yes (Hospitalization)
  Sender: FDA-Public Use
  Company Number: A0707511A

PATIENT
  Age: 2 Year
  Sex: Male

DRUGS (1)
  1. BUPROPION HCL [Suspect]
     Indication: DEPRESSION
     Dosage: 150MG UNKNOWN
     Route: 048

REACTIONS (3)
  - ACCIDENTAL EXPOSURE [None]
  - NO ADVERSE EVENT [None]
  - PHARMACEUTICAL PRODUCT COMPLAINT [None]
